FAERS Safety Report 15437395 (Version 1)
Quarter: 2018Q3

REPORT INFORMATION
  Report Type: Spontaneous
  Country: US (occurrence: US)
  Receive Date: 20180927
  Receipt Date: 20180927
  Transmission Date: 20181010
  Serious: No
  Sender: FDA-Public Use
  Company Number: US-AMGEN-USASP2018078687

PATIENT
  Age: 11 Year
  Sex: Male
  Weight: 36 kg

DRUGS (13)
  1. CALCITROL [Concomitant]
     Active Substance: CALCITRIOL
     Dosage: UNK
     Route: 048
  2. LOSARTAN. [Concomitant]
     Active Substance: LOSARTAN
     Dosage: 25 MG, QD
     Route: 048
  3. XGEVA [Suspect]
     Active Substance: DENOSUMAB
     Dosage: 0.27 ML, UNK
     Route: 058
     Dates: start: 20171025, end: 20171219
  4. GUANFACINE. [Concomitant]
     Active Substance: GUANFACINE
     Dosage: UNK
  5. MELATONIN [Concomitant]
     Active Substance: MELATONIN
     Dosage: UNK
  6. FLUOXETINE [Concomitant]
     Active Substance: FLUOXETINE HYDROCHLORIDE
     Dosage: 20 MG, QD
     Route: 048
  7. XGEVA [Suspect]
     Active Substance: DENOSUMAB
     Indication: OSTEOLYSIS
     Dosage: 0.26 ML (1.7 ML), UNK
     Route: 058
     Dates: start: 20170802, end: 20171024
  8. XGEVA [Suspect]
     Active Substance: DENOSUMAB
     Dosage: 0.26 ML, UNK
     Route: 058
     Dates: start: 20180411, end: 20180605
  9. XGEVA [Suspect]
     Active Substance: DENOSUMAB
     Dosage: 0.27 ML, UNK
     Route: 058
     Dates: start: 20180606
  10. CALCIUM CARBONATE. [Concomitant]
     Active Substance: CALCIUM CARBONATE
     Dosage: 500 MG, BID
     Route: 048
     Dates: start: 2017
  11. XGEVA [Suspect]
     Active Substance: DENOSUMAB
     Dosage: 0.26 ML, UNK
     Route: 058
     Dates: start: 20171220, end: 20180213
  12. ATOMOXETINE. [Concomitant]
     Active Substance: ATOMOXETINE HYDROCHLORIDE
     Dosage: 25 MG, QD
     Route: 048
  13. XGEVA [Suspect]
     Active Substance: DENOSUMAB
     Dosage: 0.26 ML, UNK
     Route: 058
     Dates: start: 20180214, end: 20180410

REACTIONS (3)
  - Off label use [Unknown]
  - Drug resistance [Unknown]
  - Bone formation decreased [Not Recovered/Not Resolved]

NARRATIVE: CASE EVENT DATE: 201708
